FAERS Safety Report 24988259 (Version 2)
Quarter: 2025Q2

REPORT INFORMATION
  Report Type: Spontaneous
  Country: US (occurrence: US)
  Receive Date: 20250220
  Receipt Date: 20250502
  Transmission Date: 20250717
  Serious: Yes (Disabling, Other)
  Sender: ABBVIE
  Company Number: US-ABBVIE-6138991

PATIENT
  Age: 70 Year
  Sex: Female
  Weight: 102.05 kg

DRUGS (1)
  1. VRAYLAR [Suspect]
     Active Substance: CARIPRAZINE
     Indication: Supplementation therapy
     Route: 048
     Dates: start: 20231130

REACTIONS (5)
  - Disability [Not Recovered/Not Resolved]
  - Alopecia [Unknown]
  - Ear disorder [Unknown]
  - Epistaxis [Not Recovered/Not Resolved]
  - Eye disorder [Not Recovered/Not Resolved]

NARRATIVE: CASE EVENT DATE: 20230101
